FAERS Safety Report 7851705-1 (Version None)
Quarter: 2011Q4

REPORT INFORMATION
  Report Type: 
  Country: None (occurrence: None)
  Receive Date: 20111026
  Receipt Date: 20111017
  Transmission Date: 20120403
  Serious: Yes (Other)
  Sender: FDA-Public Use
  Company Number: US-US-EMD SERONO, INC.-7090314

PATIENT
  Sex: Female

DRUGS (1)
  1. REBIF [Suspect]
     Indication: PRODUCT USED FOR UNKNOWN INDICATION
     Route: 058
     Dates: start: 20110818

REACTIONS (5)
  - INJECTION SITE PAIN [None]
  - PNEUMONIA [None]
  - URTICARIA [None]
  - BRONCHITIS [None]
  - MULTIPLE ALLERGIES [None]
